FAERS Safety Report 25607521 (Version 1)
Quarter: 2025Q3

REPORT INFORMATION
  Report Type: Spontaneous
  Country: KR (occurrence: KR)
  Receive Date: 20250725
  Receipt Date: 20250725
  Transmission Date: 20251020
  Serious: Yes (Hospitalization)
  Sender: FERRING
  Company Number: KR-FERRINGPH-2025FE03836

PATIENT

DRUGS (1)
  1. MINIRIN [Suspect]
     Active Substance: DESMOPRESSIN ACETATE
     Indication: Nocturia
     Dosage: 1 DOSAGE FORM, 1 TIME DAILY
     Route: 065
     Dates: start: 20190108, end: 20190805

REACTIONS (2)
  - Asthenia [Recovering/Resolving]
  - Hyponatraemia [Recovering/Resolving]

NARRATIVE: CASE EVENT DATE: 20190721
